FAERS Safety Report 9145659 (Version 1)
Quarter: 2013Q1

REPORT INFORMATION
  Report Type: Spontaneous
  Country: US (occurrence: US)
  Receive Date: 20130307
  Receipt Date: 20130307
  Transmission Date: 20140127
  Serious: No
  Sender: FDA-Public Use
  Company Number: US-PFIZER INC-2013075105

PATIENT
  Sex: Male

DRUGS (3)
  1. TAPAZOLE [Suspect]
     Indication: THYROID DISORDER
     Dosage: 5 MG, 1X/DAY
     Dates: start: 2012
  2. TAPAZOLE [Suspect]
     Dosage: 15 MG, 1X/DAY
  3. TAPAZOLE [Suspect]
     Dosage: UNK
     Dates: end: 201302

REACTIONS (2)
  - Incorrect dose administered [Unknown]
  - Hypothyroidism [Unknown]
